FAERS Safety Report 10237467 (Version 4)
Quarter: 2014Q4

REPORT INFORMATION
  Report Type: Spontaneous
  Country: JP (occurrence: JP)
  Receive Date: 20140615
  Receipt Date: 20141212
  Transmission Date: 20150528
  Serious: Yes (Death, Other)
  Sender: FDA-Public Use
  Company Number: JP-009507513-1406JPN003221

PATIENT
  Age: 51 Year
  Sex: Male
  Weight: 63 kg

DRUGS (8)
  1. CANCIDAS [Suspect]
     Active Substance: CASPOFUNGIN ACETATE
     Indication: DIVERTICULITIS
     Dosage: 70 MG, QD
     Route: 041
     Dates: start: 20140131, end: 20140131
  2. VENOGLOBULIN-IH [Concomitant]
     Indication: DIVERTICULITIS
     Dosage: 5 G, QD
     Route: 051
     Dates: start: 20140131, end: 20140202
  3. ACYCLOVIR. [Concomitant]
     Active Substance: ACYCLOVIR
     Indication: DIVERTICULITIS
  4. REMODULIN [Concomitant]
     Active Substance: TREPROSTINIL
     Indication: DISSEMINATED INTRAVASCULAR COAGULATION
     Dosage: 8.32 THOUSAND-MILLION UNIT, QD
     Route: 051
     Dates: start: 20140131, end: 20140205
  5. MEROPEN [Concomitant]
     Active Substance: MEROPENEM
     Indication: DIVERTICULITIS
     Dosage: 0.5 G, BID
     Route: 051
     Dates: start: 20140127, end: 20140209
  6. ACYCLOVIR. [Concomitant]
     Active Substance: ACYCLOVIR
     Indication: VIRAL INFECTION
     Dosage: 250 MG, QD
     Route: 051
     Dates: start: 20140131, end: 20140207
  7. CANCIDAS [Suspect]
     Active Substance: CASPOFUNGIN ACETATE
     Indication: DIVERTICULITIS
     Dosage: 50 MG, QD
     Route: 041
     Dates: start: 20140201, end: 20140222
  8. DENOSINE [Concomitant]
     Active Substance: GANCICLOVIR
     Indication: VIRAL INFECTION
     Dosage: 300 MG, QD
     Route: 051
     Dates: start: 20140131, end: 20140210

REACTIONS (6)
  - Cardiac failure [Fatal]
  - White blood cell count increased [Fatal]
  - C-reactive protein increased [Fatal]
  - Arrhythmia [Fatal]
  - Cardiac arrest [Fatal]
  - Blood pressure decreased [Fatal]

NARRATIVE: CASE EVENT DATE: 20140131
